FAERS Safety Report 7648773-9 (Version None)
Quarter: 2011Q3

REPORT INFORMATION
  Report Type: 
  Country: None (occurrence: None)
  Receive Date: 20110801
  Receipt Date: 20110727
  Transmission Date: 20111222
  Serious: Yes (Hospitalization, Other)
  Sender: FDA-Public Use
  Company Number: PHHO2011KR09842

PATIENT
  Sex: Female
  Weight: 66.8 kg

DRUGS (8)
  1. GLEEVEC [Suspect]
     Indication: PULMONARY ARTERIAL HYPERTENSION
     Dosage: 400 MG, QD
     Route: 048
     Dates: start: 20100726, end: 20101208
  2. BERAPROST [Concomitant]
     Indication: PULMONARY ARTERIAL HYPERTENSION
     Dosage: 40 UG, TID
     Route: 048
     Dates: start: 20090928
  3. GLEEVEC [Suspect]
     Dosage: 200 MG, QD
     Route: 048
     Dates: start: 20101209, end: 20110609
  4. SPIRONOLACTONE [Concomitant]
     Indication: PULMONARY ARTERIAL HYPERTENSION
     Dosage: 25 MG, QD
     Route: 048
     Dates: start: 20070801
  5. WARFARIN [Concomitant]
     Dosage: UNK
     Dates: start: 20110610
  6. SILDENAFIL CITRATE [Concomitant]
     Indication: PULMONARY ARTERIAL HYPERTENSION
     Dosage: 25 MG, TID
     Route: 048
     Dates: start: 20070604
  7. FUROSEMIDE [Concomitant]
     Indication: PULMONARY ARTERIAL HYPERTENSION
     Dosage: 40 MG, QD
     Route: 048
     Dates: start: 20100915
  8. WARFARIN [Concomitant]
     Indication: PULMONARY ARTERIAL HYPERTENSION
     Dosage: 4 MG, QD
     Route: 048
     Dates: start: 20110303, end: 20110607

REACTIONS (2)
  - PULMONARY EMBOLISM [None]
  - SYNCOPE [None]
